FAERS Safety Report 16344071 (Version 2)
Quarter: 2019Q3

REPORT INFORMATION
  Report Type: Spontaneous
  Country: US (occurrence: US)
  Receive Date: 20190522
  Receipt Date: 20190709
  Transmission Date: 20191004
  Serious: No
  Sender: FDA-Public Use
  Company Number: US-NEUROCRINE BIOSCIENCES INC.-2019NBI01236

PATIENT
  Sex: Female

DRUGS (4)
  1. INGREZZA [Suspect]
     Active Substance: VALBENAZINE
     Indication: TARDIVE DYSKINESIA
     Dosage: 2 X 40 MG CAPSULE
     Route: 048
  2. INGREZZA [Suspect]
     Active Substance: VALBENAZINE
     Route: 048
  3. RISPERIDONE. [Concomitant]
     Active Substance: RISPERIDONE
  4. LISINOPRIL. [Concomitant]
     Active Substance: LISINOPRIL

REACTIONS (4)
  - Drooling [Unknown]
  - Somnolence [Unknown]
  - Tremor [Unknown]
  - Confusional state [Unknown]
